FAERS Safety Report 10598214 (Version 2)
Quarter: 2015Q1

REPORT INFORMATION
  Report Type: Spontaneous
  Country: JP (occurrence: None)
  Receive Date: 20141119
  Receipt Date: 20150127
  Transmission Date: 20150720
  Serious: Yes (Hospitalization, Other)
  Sender: FDA-Public Use
  Company Number: ADR-2014-02138

PATIENT
  Age: 52 Year
  Sex: Male
  Weight: 50 kg

DRUGS (1)
  1. GABALON INTRATHECAL 0.05% [Suspect]
     Active Substance: BACLOFEN

REACTIONS (4)
  - Cyanosis [None]
  - Deep vein thrombosis [None]
  - Pain in extremity [None]
  - Peripheral swelling [None]

NARRATIVE: CASE EVENT DATE: 20140715
